FAERS Safety Report 4989607-0 (Version None)
Quarter: 2006Q2

REPORT INFORMATION
  Report Type: 
  Country: None (occurrence: None)
  Receive Date: 20060426
  Receipt Date: 20060417
  Transmission Date: 20061013
  Serious: Yes (Hospitalization)
  Sender: FDA-Public Use
  Company Number: 200611749BWH

PATIENT
  Age: 57 Year
  Sex: Male

DRUGS (19)
  1. NEXAVAR [Suspect]
     Indication: METASTATIC RENAL CELL CARCINOMA
     Dosage: SEE IMAGE
     Route: 048
     Dates: start: 20060201, end: 20060213
  2. NEXAVAR [Suspect]
     Indication: METASTATIC RENAL CELL CARCINOMA
     Dosage: SEE IMAGE
     Route: 048
     Dates: start: 20060301
  3. NEXAVAR [Suspect]
     Indication: METASTATIC RENAL CELL CARCINOMA
     Dosage: SEE IMAGE
     Route: 048
     Dates: start: 20060301
  4. FENTANYL [Concomitant]
  5. SOMA [Concomitant]
  6. ZOLOFT [Concomitant]
  7. ATENOLOL [Concomitant]
  8. PANCREASE [Concomitant]
  9. HUMALOG [Concomitant]
  10. DILAUDID [Concomitant]
  11. LANTUS [Concomitant]
  12. BACLOFEN [Concomitant]
  13. MARINOL [Concomitant]
  14. PROTONIX [Concomitant]
  15. DILTIAZEM [Concomitant]
  16. TRIAZOLAM [Concomitant]
  17. GLYBURIDE [Concomitant]
  18. ZOFRAN [Concomitant]
  19. AMBIEN [Concomitant]

REACTIONS (18)
  - BACK PAIN [None]
  - CONFUSIONAL STATE [None]
  - DERMATITIS [None]
  - DISCOMFORT [None]
  - DISORIENTATION [None]
  - EXFOLIATIVE RASH [None]
  - FAECAL INCONTINENCE [None]
  - MALIGNANT NEOPLASM PROGRESSION [None]
  - MASS [None]
  - METASTASES TO ADRENALS [None]
  - METASTASES TO LIVER [None]
  - NAUSEA [None]
  - PAIN [None]
  - PYREXIA [None]
  - RESTLESSNESS [None]
  - SHOULDER PAIN [None]
  - URINARY INCONTINENCE [None]
  - VOMITING [None]
